FAERS Safety Report 9506985 (Version 2)
Quarter: 2013Q3

REPORT INFORMATION
  Report Type: Spontaneous
  Country: IT (occurrence: IT)
  Receive Date: 20130909
  Receipt Date: 20130911
  Transmission Date: 20140515
  Serious: Yes (Hospitalization)
  Sender: FDA-Public Use
  Company Number: IT-RANBAXY-2013RR-72700

PATIENT
  Age: 49 Year
  Sex: Female

DRUGS (2)
  1. LEVOFLOXACIN [Suspect]
     Indication: PNEUMONIA
     Dosage: 1000 MG DAILY
     Route: 048
     Dates: start: 20130617, end: 20130627
  2. CLARITHROMYCIN [Suspect]
     Indication: PNEUMONIA
     Dosage: 1000 MG DAILY
     Route: 048
     Dates: start: 20130623, end: 20130627

REACTIONS (2)
  - Erythema [Recovering/Resolving]
  - Pruritus [Recovering/Resolving]
